FAERS Safety Report 13539434 (Version 11)
Quarter: 2018Q1

REPORT INFORMATION
  Report Type: Spontaneous
  Country: US (occurrence: US)
  Receive Date: 20170512
  Receipt Date: 20180110
  Transmission Date: 20180508
  Serious: Yes (Other)
  Sender: FDA-Public Use
  Company Number: US-PFIZER INC-2017208426

PATIENT
  Age: 70 Year
  Sex: Female
  Weight: 88.45 kg

DRUGS (19)
  1. PROAIR HFA [Concomitant]
     Active Substance: ALBUTEROL SULFATE
     Dosage: UNK, AS NEEDED (2 PUFFS AS NEEDED)
     Route: 055
  2. VITAMIN K+D [Concomitant]
     Indication: HYPOVITAMINOSIS
     Dosage: 1 DF, 1X/DAY (D3: 5000IU AND K: 2100MCG. TAKING VITAMIN D3 FOR 3 YEARS)
  3. MELATONIN [Concomitant]
     Active Substance: MELATONIN
     Indication: SLEEP DISORDER
     Dosage: 20 MG, 1X/DAY (AT NIGHT)
  4. IBRANCE [Suspect]
     Active Substance: PALBOCICLIB
     Dosage: 100 MG, CYCLIC (ONCE A DAY FOR 21 DAYS AND STOP FOR 7 DAYS)
     Dates: start: 201708
  5. BREO ELLIPTA [Concomitant]
     Active Substance: FLUTICASONE FUROATE\VILANTEROL TRIFENATATE
     Indication: ASTHMA
     Dosage: UNK,INHALER, 1X/DAY (ONE PUFF EVERY MORNING)
     Route: 055
     Dates: start: 2014
  6. OMEGA 3 [Concomitant]
     Active Substance: OMEGA-3 FATTY ACIDS
     Indication: SUPPLEMENTATION THERAPY
     Dosage: UNK, 2X/DAY
     Dates: start: 2016
  7. FEMARA [Concomitant]
     Active Substance: LETROZOLE
     Dosage: UNK
  8. IBRANCE [Suspect]
     Active Substance: PALBOCICLIB
     Dosage: 100 MG, 1X/DAY
     Route: 048
     Dates: start: 201703
  9. IBRANCE [Suspect]
     Active Substance: PALBOCICLIB
     Indication: BREAST CANCER METASTATIC
     Dosage: 100 MG, CYCLIC (DAILY 21 DAYS ON 7 DAY OFF EACH CYCLE) (1/DAY 21 DAYS ON 7 OFF)
     Route: 048
     Dates: start: 20170315
  10. IBRANCE [Suspect]
     Active Substance: PALBOCICLIB
     Dosage: 100 MG, CYCLIC (DAILY FOR 21 DAYS ON 7 DAYS OFF)
     Route: 048
     Dates: start: 20170315
  11. LEVOTHYROXINE. [Concomitant]
     Active Substance: LEVOTHYROXINE
     Indication: THYROID DISORDER
     Dosage: 75 UG, 1X/DAY
     Dates: start: 2000
  12. VITAMIN D [Concomitant]
     Active Substance: CHOLECALCIFEROL
     Indication: SUPPLEMENTATION THERAPY
     Dosage: UNK, 1X/DAY
     Dates: start: 201504
  13. IBRANCE [Suspect]
     Active Substance: PALBOCICLIB
     Dosage: 100 MG, CYCLIC  (ONCE DAILY FOR 21 DAYS OUT OF EVERY 28 DAYS)
     Route: 048
     Dates: start: 201704
  14. IBRANCE [Suspect]
     Active Substance: PALBOCICLIB
     Dosage: UNK
     Route: 048
     Dates: start: 20170510
  15. LETROZOLE. [Concomitant]
     Active Substance: LETROZOLE
     Indication: NEOPLASM MALIGNANT
     Dosage: 2.5 MG, 1X/DAY
     Route: 048
     Dates: start: 201703
  16. ZOMETA [Concomitant]
     Active Substance: ZOLEDRONIC ACID
     Indication: BONE DISORDER
     Dosage: UNK (USE TO TAKE EVERY MONTH, NOW TAKE EVERY 2 OR 3 MONTHS)
     Route: 041
     Dates: start: 2011
  17. MELATONIN [Concomitant]
     Active Substance: MELATONIN
     Indication: NEOPLASM MALIGNANT
  18. VITAMIN K [Concomitant]
     Active Substance: PHYTONADIONE
     Indication: SUPPLEMENTATION THERAPY
     Dosage: UNK, 1X/DAY
     Dates: start: 201704
  19. OMEGA 3 MAX [Concomitant]
     Indication: IMMUNE SYSTEM DISORDER
     Dosage: 2400 MG, 2X/DAY

REACTIONS (12)
  - Haemorrhage [Unknown]
  - Cough [Recovered/Resolved]
  - Pharyngeal disorder [Unknown]
  - Oral mucosal blistering [Unknown]
  - Rhinorrhoea [Recovered/Resolved]
  - Neoplasm progression [Not Recovered/Not Resolved]
  - Malaise [Recovered/Resolved]
  - Hypersensitivity [Unknown]
  - Retinal haemorrhage [Recovered/Resolved]
  - Oropharyngeal pain [Recovered/Resolved]
  - Nasopharyngitis [Recovered/Resolved]
  - Multiple allergies [Unknown]

NARRATIVE: CASE EVENT DATE: 20170317
